FAERS Safety Report 4384906-8 (Version None)
Quarter: 2004Q2

REPORT INFORMATION
  Report Type: 
  Country: None (occurrence: None)
  Receive Date: 20040621
  Receipt Date: 20040609
  Transmission Date: 20050107
  Serious: Yes (Hospitalization)
  Sender: FDA-Public Use
  Company Number: 04P-087-0263608-00

PATIENT
  Age: 27 Year
  Sex: Female

DRUGS (2)
  1. BIAXIN [Suspect]
     Indication: RESPIRATORY TRACT INFECTION
     Dosage: 400 MG, 1 IN 1 D, PER ORAL
     Route: 048
     Dates: start: 20031224, end: 20031226
  2. HUSCODE [Concomitant]

REACTIONS (2)
  - LIVER DISORDER [None]
  - PRURITUS GENITAL [None]
